FAERS Safety Report 25701052 (Version 2)
Quarter: 2025Q3

REPORT INFORMATION
  Report Type: Spontaneous
  Country: CA (occurrence: CA)
  Receive Date: 20250819
  Receipt Date: 20250916
  Transmission Date: 20251020
  Serious: Yes (Other)
  Sender: TAKEDA
  Company Number: CA-TAKEDA-2025TUS072058

PATIENT
  Age: 39 Year
  Sex: Male

DRUGS (9)
  1. MESALAMINE [Suspect]
     Active Substance: MESALAMINE
     Indication: Product used for unknown indication
  2. RENFLEXIS [Suspect]
     Active Substance: INFLIXIMAB-ABDA
     Indication: Colitis ulcerative
     Dosage: 5 MILLIGRAM/KILOGRAM, Q8WEEKS
  3. RENFLEXIS [Suspect]
     Active Substance: INFLIXIMAB-ABDA
     Dosage: 10 MILLIGRAM/KILOGRAM, Q8WEEKS
  4. RENFLEXIS [Suspect]
     Active Substance: INFLIXIMAB-ABDA
     Dosage: 5 MILLIGRAM/KILOGRAM, Q8WEEKS
  5. RENFLEXIS [Suspect]
     Active Substance: INFLIXIMAB-ABDA
     Dosage: 5 MILLIGRAM/KILOGRAM, Q8WEEKS
     Dates: start: 20241003
  6. RENFLEXIS [Suspect]
     Active Substance: INFLIXIMAB-ABDA
     Dosage: 5 MILLIGRAM/KILOGRAM, Q8WEEKS
  7. RENFLEXIS [Suspect]
     Active Substance: INFLIXIMAB-ABDA
     Dosage: 10 MILLIGRAM/KILOGRAM, Q8WEEKS
  8. IRON [Concomitant]
     Active Substance: IRON
     Indication: Product used for unknown indication
  9. XARELTO [Concomitant]
     Active Substance: RIVAROXABAN
     Indication: Product used for unknown indication

REACTIONS (3)
  - Colitis ulcerative [Not Recovered/Not Resolved]
  - Illness [Not Recovered/Not Resolved]
  - Drug ineffective [Not Recovered/Not Resolved]
